FAERS Safety Report 8069797-6 (Version None)
Quarter: 2012Q1

REPORT INFORMATION
  Report Type: 
  Country: None (occurrence: None)
  Receive Date: 20120125
  Receipt Date: 20120119
  Transmission Date: 20120608
  Serious: Yes (Other)
  Sender: FDA-Public Use
  Company Number: US-PFIZER INC-2012016472

PATIENT
  Sex: Female
  Weight: 81.633 kg

DRUGS (15)
  1. DILANTIN [Suspect]
     Dosage: 100 MG, 2X/DAY
     Dates: start: 20110101
  2. DILANTIN [Suspect]
     Dosage: UNK
  3. LEVOTHYROXINE SODIUM [Suspect]
     Indication: THYROID DISORDER
     Dosage: 25 UG, DAILY
  4. LEVOTHYROXINE SODIUM [Suspect]
     Dosage: UNK
  5. AMLODIPINE BESYLATE [Suspect]
     Indication: HYPERTENSION
     Dosage: 10 MG, DAILY
  6. VITAMIN B-12 [Suspect]
     Indication: BONE DISORDER
     Dosage: UNK
  7. VITAMIN D [Concomitant]
     Indication: BONE DISORDER
     Dosage: 10000 IU, WEEKLY
     Route: 048
  8. DILANTIN [Suspect]
     Indication: EPILEPSY
     Dosage: 100 MG, 2X/DAY
     Dates: start: 19630101
  9. DILANTIN [Suspect]
     Dosage: 50 MG, 2X/DAY
     Route: 048
     Dates: start: 20111101
  10. VISTARIL [Suspect]
     Indication: ANXIETY
     Dosage: 50 MG, AS NEEDED
  11. PHENOBARBITAL TAB [Concomitant]
     Indication: EPILEPSY
     Dosage: 60 MG, 2X/DAY
     Dates: start: 19630101
  12. FISH OIL [Concomitant]
     Dosage: UNK
  13. VISTARIL [Suspect]
     Dosage: UNK
  14. COLECALCIFEROL [Concomitant]
     Dosage: UNK
  15. ALPRAZOLAM [Concomitant]
     Indication: ANXIETY
     Dosage: 25 MG, 2X/DAY

REACTIONS (9)
  - DYSPHAGIA [None]
  - ANXIETY [None]
  - BLADDER DISORDER [None]
  - CONVULSION [None]
  - HYSTERECTOMY [None]
  - INSOMNIA [None]
  - DRUG INEFFECTIVE [None]
  - CHOKING [None]
  - POLLAKIURIA [None]
